FAERS Safety Report 8762207 (Version 1)
Quarter: 2012Q4

REPORT INFORMATION
  Report Type: 
  Country: CN (occurrence: CN)
  Receive Date: 20120830
  Receipt Date: 20120830
  Transmission Date: 20130627
  Serious: Yes (Other)
  Sender: FDA-Public Use
  Company Number: CN-ROCHE-1103166

PATIENT
  Age: 64 Year
  Sex: Female
  Weight: 70 kg

DRUGS (6)
  1. ROCEPHIN [Suspect]
     Indication: INFECTION
     Route: 041
     Dates: start: 20091026, end: 20091101
  2. ROCEPHIN [Suspect]
     Indication: PYREXIA
  3. RECOMBINANT HUMAN ERYTHROPOIETIN [Concomitant]
     Indication: NEPHROGENIC ANAEMIA
     Route: 058
     Dates: start: 20091026, end: 20091103
  4. TERAZOSIN HYDROCHLORIDE [Concomitant]
     Indication: HYPERTENSION
     Route: 048
     Dates: start: 20091026, end: 20091103
  5. FELODIPINE [Concomitant]
     Indication: RENAL HYPERTENSION
     Route: 048
     Dates: start: 20091026, end: 20091103
  6. TORASEMIDE [Concomitant]
     Indication: OEDEMA
     Route: 048
     Dates: start: 20091026, end: 20091103

REACTIONS (2)
  - Delirium [Recovered/Resolved]
  - Confusional state [Recovered/Resolved]
